FAERS Safety Report 6399481-6 (Version None)
Quarter: 2009Q4

REPORT INFORMATION
  Report Type: 
  Country: None (occurrence: None)
  Receive Date: 20091008
  Receipt Date: 20091008
  Transmission Date: 20100525
  Serious: Yes (Other)
  Sender: FDA-Public Use
  Company Number: None

PATIENT
  Age: 57 Year
  Sex: Female
  Weight: 72.5755 kg

DRUGS (1)
  1. TOPIRAMATE [Suspect]
     Dosage: ONE, QD, PO
     Route: 048
     Dates: start: 20090515

REACTIONS (6)
  - AFFECTIVE DISORDER [None]
  - AGITATION [None]
  - ALOPECIA [None]
  - ANXIETY [None]
  - FEELING ABNORMAL [None]
  - PRODUCT SUBSTITUTION ISSUE [None]
